FAERS Safety Report 8433758-5 (Version None)
Quarter: 2012Q2

REPORT INFORMATION
  Report Type: 
  Country: None (occurrence: None)
  Receive Date: 20120323
  Receipt Date: 20111125
  Transmission Date: 20120825
  Serious: Yes (Other)
  Sender: FDA-Public Use
  Company Number: 163-21880-11073244

PATIENT
  Age: 91 Year
  Sex: Female

DRUGS (5)
  1. FOSAMAX [Concomitant]
  2. LENALIDOMIDE [Suspect]
     Indication: MULTIPLE MYELOMA
     Dosage: 10 MG, DAILY, PO, 5 MG, QOD, PO
     Route: 048
     Dates: start: 20110606
  3. LENALIDOMIDE [Suspect]
     Indication: MULTIPLE MYELOMA
     Dosage: 10 MG, DAILY, PO, 5 MG, QOD, PO
     Route: 048
     Dates: start: 20110725
  4. IRON (IRON) [Concomitant]
  5. PRILOSEC [Concomitant]

REACTIONS (1)
  - PLATELET COUNT DECREASED [None]
